FAERS Safety Report 9240968 (Version 1)
Quarter: 2013Q1

REPORT INFORMATION
  Report Type: Spontaneous
  Country: US (occurrence: None)
  Receive Date: 20121120
  Receipt Date: 20121120
  Transmission Date: 20140127
  Serious: No
  Sender: FDA-Public Use
  Company Number: 1000039538

PATIENT
  Sex: Male

DRUGS (2)
  1. VIIBRYD [Suspect]
     Indication: MAJOR DEPRESSION
     Dosage: 40MG (40MG, 1 IN 1 D, ORAL)
     Route: 048
  2. VIIBRYD [Suspect]
     Indication: SCHIZOAFFECTIVE DISORDER
     Dosage: 40MG (40MG, 1 IN 1 D, ORAL)
     Route: 048

REACTIONS (1)
  - Malaise [None]
